FAERS Safety Report 23104023 (Version 2)
Quarter: 2023Q4

REPORT INFORMATION
  Report Type: Spontaneous
  Country: CN (occurrence: CN)
  Receive Date: 20231025
  Receipt Date: 20231031
  Transmission Date: 20240109
  Serious: Yes (Death, Life-Threatening, Other)
  Sender: FDA-Public Use
  Company Number: CN-BAYER-2023A150623

PATIENT
  Age: 59 Year
  Sex: Male

DRUGS (3)
  1. ULTRAVIST [Suspect]
     Active Substance: IOPROMIDE
     Indication: Angiocardiogram
     Dosage: 1 ML, ONCE WITH 0.9% NORMAL SALINE 30ML, FLOW RATE 5.0ML/S,INTRAVENOUSLY WITH A HIGH-PRESSURE SYRING
     Route: 042
     Dates: start: 20231018, end: 20231018
  2. ULTRAVIST [Suspect]
     Active Substance: IOPROMIDE
     Indication: Angiocardiogram
     Dosage: 55 ML, ONCE, 4.5ML/S
     Route: 042
     Dates: start: 20231018, end: 20231018
  3. SODIUM CHLORIDE [Concomitant]
     Active Substance: SODIUM CHLORIDE
     Indication: Angiocardiogram
     Dosage: 30 ML, ONCE
     Route: 042
     Dates: start: 20231018, end: 20231018

REACTIONS (30)
  - Anaphylactic shock [Fatal]
  - Cardiac arrest [Fatal]
  - Blood pressure immeasurable [Not Recovered/Not Resolved]
  - Rhythm idioventricular [Recovering/Resolving]
  - Respiratory tract haemorrhage [None]
  - Mucosal haemorrhage [None]
  - Gastrointestinal disorder [None]
  - Haematochezia [None]
  - Gastric haemorrhage [None]
  - Disseminated intravascular coagulation [None]
  - Loss of consciousness [Recovered/Resolved]
  - Blood pressure decreased [None]
  - Feeling hot [None]
  - Vertigo [None]
  - Hyperhidrosis [None]
  - Respiration abnormal [Recovered/Resolved]
  - Pulse absent [None]
  - Cold sweat [None]
  - Cyanosis [None]
  - Carotid pulse decreased [None]
  - Sinus rhythm [None]
  - Respiratory rate increased [None]
  - Oxygen saturation decreased [None]
  - Dysphoria [None]
  - Back pain [None]
  - Pallor [None]
  - Heart rate increased [None]
  - Confusional state [None]
  - Tachypnoea [None]
  - Heart rate decreased [None]

NARRATIVE: CASE EVENT DATE: 20231018
